FAERS Safety Report 8848559 (Version 1)
Quarter: 2012Q4

REPORT INFORMATION
  Report Type: 
  Country: US (occurrence: US)
  Receive Date: 20121018
  Receipt Date: 20121018
  Transmission Date: 20130627
  Serious: Yes (Other)
  Sender: FDA-Public Use
  Company Number: US-GLAXOSMITHKLINE-A0997740A

PATIENT
  Age: 70 Year
  Sex: Male
  Weight: 106.8 kg

DRUGS (2)
  1. JALYN [Suspect]
     Indication: PROSTATIC SPECIFIC ANTIGEN INCREASED
  2. BLOOD PRESSURE MEDICATION [Concomitant]

REACTIONS (1)
  - Renal cancer [Recovered/Resolved]
